FAERS Safety Report 9494905 (Version 2)
Quarter: 2014Q1

REPORT INFORMATION
  Report Type: Spontaneous
  Country: FR (occurrence: FR)
  Receive Date: 20130903
  Receipt Date: 20140106
  Transmission Date: 20141002
  Serious: Yes (Life-Threatening, Hospitalization, Other)
  Sender: FDA-Public Use
  Company Number: FR-ASTRAZENECA-2013SE66510

PATIENT
  Age: 376 Month
  Sex: Female

DRUGS (16)
  1. DIPRIVAN [Suspect]
     Indication: ANAESTHESIA
     Route: 042
     Dates: start: 20120108
  2. BUPIVACAINE AGUETTANT [Suspect]
     Indication: SPINAL ANAESTHESIA
     Route: 042
     Dates: start: 20120108
  3. CELOCURINE [Suspect]
     Indication: ENDOTRACHEAL INTUBATION
     Route: 042
     Dates: start: 20120108
  4. EPHEDRINE [Suspect]
     Indication: SPINAL ANAESTHESIA
     Route: 042
     Dates: start: 20120108
  5. EXACYL [Suspect]
     Indication: POSTPARTUM HAEMORRHAGE
     Route: 042
     Dates: start: 20120108
  6. TAGAMET [Suspect]
     Indication: SPINAL ANAESTHESIA
     Route: 042
     Dates: start: 20120108
  7. PABAL [Suspect]
     Indication: UTERINE ATONY
     Route: 042
     Dates: start: 20120108
  8. CEFAZOLIN [Suspect]
     Indication: ANTIBIOTIC PROPHYLAXIS
     Route: 042
     Dates: start: 20120108
  9. CLOTTAFACT [Suspect]
     Indication: THIRD STAGE POSTPARTUM HAEMORRHAGE
     Route: 042
     Dates: start: 20120108
  10. NOVOSEVEN [Suspect]
     Indication: THIRD STAGE POSTPARTUM HAEMORRHAGE
     Route: 042
     Dates: start: 20120108
  11. NALADOR [Suspect]
     Route: 042
     Dates: start: 20120108
  12. SEVOFLURANE BAXTER [Suspect]
     Indication: ANAESTHESIA
     Route: 055
     Dates: start: 20120108
  13. TRACRIUM [Suspect]
     Indication: ANAESTHESIA
     Route: 042
  14. NEOSYNEPHRINE [Suspect]
     Dates: start: 20120108
  15. SUFENTA [Suspect]
     Dates: start: 20120108
  16. ETOMIDATE [Suspect]
     Route: 065
     Dates: start: 20120108

REACTIONS (7)
  - Renal failure acute [Recovered/Resolved]
  - Uterine atony [Recovering/Resolving]
  - Postpartum haemorrhage [Recovering/Resolving]
  - Coagulopathy [Recovering/Resolving]
  - Shock haemorrhagic [Recovering/Resolving]
  - Urinary tract infection [Recovering/Resolving]
  - Respiratory failure [Recovering/Resolving]
